FAERS Safety Report 6030242-3 (Version None)
Quarter: 2009Q1

REPORT INFORMATION
  Report Type: 
  Country: None (occurrence: None)
  Receive Date: 20090105
  Receipt Date: 20090105
  Transmission Date: 20090719
  Serious: Yes (Life-Threatening)
  Sender: FDA-Public Use
  Company Number: None

PATIENT
  Age: 58 Year
  Sex: Male
  Weight: 86.637 kg

DRUGS (1)
  1. ALEVE [Suspect]
     Indication: ARTHRALGIA
     Dosage: X1 PO
     Route: 048
     Dates: end: 20090101

REACTIONS (4)
  - DYSPNOEA [None]
  - PRURITUS GENERALISED [None]
  - SWELLING FACE [None]
  - SWOLLEN TONGUE [None]
